FAERS Safety Report 6657824-X (Version None)
Quarter: 2010Q1

REPORT INFORMATION
  Report Type: 
  Country: None (occurrence: None)
  Receive Date: 20100330
  Receipt Date: 20100323
  Transmission Date: 20100710
  Serious: Yes (Death, Hospitalization, Other)
  Sender: FDA-Public Use
  Company Number: US-ROCHE-666690

PATIENT
  Sex: Male
  Weight: 114.8 kg

DRUGS (3)
  1. CAPECITABINE [Suspect]
     Indication: HEPATIC NEOPLASM MALIGNANT
     Dosage: ROUTE: BY MOUTH
     Route: 048
     Dates: start: 20090929, end: 20100101
  2. ERLOTINIB [Suspect]
     Indication: HEPATIC NEOPLASM MALIGNANT
     Route: 048
  3. THALOMID [Suspect]
     Indication: DRUG USE FOR UNKNOWN INDICATION
     Dosage: TAKEN AT NIGHT
     Route: 048

REACTIONS (7)
  - BLOOD ALBUMIN DECREASED [None]
  - CONSTIPATION [None]
  - DEATH [None]
  - FULL BLOOD COUNT DECREASED [None]
  - METASTASES TO PANCREAS [None]
  - OEDEMA PERIPHERAL [None]
  - TRANSFUSION [None]
